FAERS Safety Report 6026614-3 (Version None)
Quarter: 2008Q4

REPORT INFORMATION
  Report Type: 
  Country: None (occurrence: None)
  Receive Date: 20081231
  Receipt Date: 20081222
  Transmission Date: 20090506
  Serious: Yes (Other)
  Sender: FDA-Public Use
  Company Number: CHPA2008US23000

PATIENT
  Age: 57 Year
  Sex: Female

DRUGS (3)
  1. GAS-X EXTRA STR CHEWABLE TABLETS UNKNOWN (NCH)(SIMETHICONE) CHEWABLE T [Suspect]
     Indication: FLATULENCE
     Dosage: 250 MG, ONCE/SINGLE, ORAL
     Route: 048
     Dates: start: 20081221, end: 20081221
  2. DURAGESIC-100 [Concomitant]
  3. METHADONE HCL [Concomitant]

REACTIONS (1)
  - VAGINAL HAEMORRHAGE [None]
